FAERS Safety Report 16483131 (Version 1)
Quarter: 2019Q2

REPORT INFORMATION
  Report Type: Spontaneous
  Country: US (occurrence: US)
  Receive Date: 20190516
  Receipt Date: 20190516
  Transmission Date: 20190711
  Serious: Yes (Other)
  Sender: FDA-Public Use
  Company Number: None

PATIENT
  Age: 77 Year
  Sex: Male
  Weight: 65.77 kg

DRUGS (24)
  1. GLIPIZIDE. [Concomitant]
     Active Substance: GLIPIZIDE
  2. IRON [Concomitant]
     Active Substance: IRON
  3. LOSARTAN. [Concomitant]
     Active Substance: LOSARTAN
  4. LYRICA [Concomitant]
     Active Substance: PREGABALIN
  5. METFORMIN ER (OSM) [Concomitant]
  6. NINLARO [Concomitant]
     Active Substance: IXAZOMIB CITRATE
  7. REVLIMID [Concomitant]
     Active Substance: LENALIDOMIDE
  8. COLCHICINE. [Concomitant]
     Active Substance: COLCHICINE
  9. NIFEDIPINE. [Concomitant]
     Active Substance: NIFEDIPINE
  10. NINLARO [Suspect]
     Active Substance: IXAZOMIB CITRATE
     Indication: PLASMA CELL MYELOMA
     Dosage: ?          OTHER FREQUENCY:DAY 1, 8, 15 ;?
     Route: 048
     Dates: start: 20190220
  11. CLINDAMYCIN. [Concomitant]
     Active Substance: CLINDAMYCIN
  12. VELCADE [Concomitant]
     Active Substance: BORTEZOMIB
  13. JANUVIA [Concomitant]
     Active Substance: SITAGLIPTIN PHOSPHATE
  14. CLINDAMYCIN 300MG CAPSULES [Suspect]
     Active Substance: CLINDAMYCIN
     Indication: GINGIVITIS
     Dates: start: 20190508
  15. ASA [Concomitant]
     Active Substance: ASPIRIN
  16. PIOGLITAZONE. [Concomitant]
     Active Substance: PIOGLITAZONE
  17. SIMVASTATIN. [Concomitant]
     Active Substance: SIMVASTATIN
  18. GLUCOSAMINE CHINDR COMPLEX [Concomitant]
  19. MORPHINE SULFATE ER [Concomitant]
     Active Substance: MORPHINE SULFATE
  20. ALLOPURINOL. [Concomitant]
     Active Substance: ALLOPURINOL
     Dates: start: 20180208
  21. CALCIUM CARBONATE+VIT D [Concomitant]
  22. ENALAPRIL [Concomitant]
     Active Substance: ENALAPRIL
  23. RED YEAST RICE [Concomitant]
     Active Substance: DIETARY SUPPLEMENT
  24. XEGVEA [Concomitant]

REACTIONS (1)
  - Diarrhoea [None]

NARRATIVE: CASE EVENT DATE: 20190515
